FAERS Safety Report 4454402-8 (Version None)
Quarter: 2004Q3

REPORT INFORMATION
  Report Type: 
  Country: None (occurrence: None)
  Receive Date: 20040921
  Receipt Date: 20040909
  Transmission Date: 20050211
  Serious: Yes (Death, Hospitalization)
  Sender: FDA-Public Use
  Company Number: US-JNJFOC-20040401714

PATIENT
  Sex: Female

DRUGS (9)
  1. REMICADE [Suspect]
     Route: 042
  2. REMICADE [Suspect]
     Route: 042
  3. REMICADE [Suspect]
     Indication: RHEUMATOID ARTHRITIS
     Route: 042
  4. PREDNISONE [Concomitant]
     Indication: PLEURAL EFFUSION
  5. POTASSIUM [Concomitant]
  6. CELEXA [Concomitant]
  7. LASIX [Concomitant]
  8. PROTONIX [Concomitant]
  9. KERLONE [Concomitant]

REACTIONS (57)
  - ABDOMINAL PAIN [None]
  - ABDOMINAL PAIN LOWER [None]
  - ABDOMINAL RIGIDITY [None]
  - ATRIAL FIBRILLATION [None]
  - BACK PAIN [None]
  - BACTERIA STOOL IDENTIFIED [None]
  - BLOOD FIBRINOGEN INCREASED [None]
  - BLOOD GLUCOSE INCREASED [None]
  - BLOOD PRESSURE DECREASED [None]
  - BLOOD SODIUM DECREASED [None]
  - CANDIDIASIS [None]
  - CANDIDURIA [None]
  - CARDIAC FAILURE CONGESTIVE [None]
  - CARDIOLIPIN ANTIBODY POSITIVE [None]
  - CEREBELLAR INFARCTION [None]
  - CHILLS [None]
  - COLITIS ISCHAEMIC [None]
  - COMA [None]
  - CONFUSIONAL STATE [None]
  - CONTUSION [None]
  - CONVULSION [None]
  - CULTURE URINE POSITIVE [None]
  - DIVERTICULITIS [None]
  - DIZZINESS [None]
  - DRUG TOXICITY [None]
  - DYSPNOEA [None]
  - EMBOLIC STROKE [None]
  - ENCEPHALOPATHY [None]
  - HAEMATOCRIT DECREASED [None]
  - HEADACHE [None]
  - HEMIPARESIS [None]
  - HEPATIC CONGESTION [None]
  - HERPES SIMPLEX [None]
  - INAPPROPRIATE ANTIDIURETIC HORMONE SECRETION [None]
  - INFECTION [None]
  - INFUSION RELATED REACTION [None]
  - INTESTINAL ISCHAEMIA [None]
  - MARKEDLY REDUCED DIETARY INTAKE [None]
  - MUSCLE TWITCHING [None]
  - NAUSEA [None]
  - NIGHT SWEATS [None]
  - PLATELET COUNT DECREASED [None]
  - POST PROCEDURAL COMPLICATION [None]
  - PRURITUS GENERALISED [None]
  - PULMONARY OEDEMA [None]
  - PYREXIA [None]
  - RASH [None]
  - RASH PRURITIC [None]
  - SEPSIS [None]
  - SPINAL COMPRESSION FRACTURE [None]
  - STOMATITIS [None]
  - STRESS INCONTINENCE [None]
  - THROMBOCYTOPENIA [None]
  - VENTRICULAR TACHYCARDIA [None]
  - VOMITING [None]
  - WEIGHT DECREASED [None]
  - WHITE BLOOD CELL COUNT INCREASED [None]
